FAERS Safety Report 5404070-3 (Version None)
Quarter: 2007Q3

REPORT INFORMATION
  Report Type: 
  Country: None (occurrence: None)
  Receive Date: 20070731
  Receipt Date: 20070717
  Transmission Date: 20080115
  Serious: Yes (Other)
  Sender: FDA-Public Use
  Company Number: 2007JP003419

PATIENT
  Age: 13 Year
  Sex: Male

DRUGS (4)
  1. PROGRAF [Suspect]
     Indication: BONE MARROW TRANSPLANT
     Dosage: 0.02 MG/KG, D
  2. CYCLOPHOSPHAMIDE [Concomitant]
  3. THYMOGLOBULIN [Concomitant]
  4. METHOTREXATE [Concomitant]

REACTIONS (1)
  - ENCEPHALITIS [None]
